FAERS Safety Report 12473190 (Version 2)
Quarter: 2016Q3

REPORT INFORMATION
  Report Type: Spontaneous
  Country: KR (occurrence: KR)
  Receive Date: 20160616
  Receipt Date: 20160801
  Transmission Date: 20161109
  Serious: Yes (Hospitalization, Other)
  Sender: FDA-Public Use
  Company Number: KR-PFIZER INC-2016304042

PATIENT
  Age: 23 Year
  Sex: Female

DRUGS (11)
  1. CYTARABINE. [Suspect]
     Active Substance: CYTARABINE
     Dosage: TOTAL OF 8 CYCLES (DURING THE EVEN CYCLES)
     Dates: start: 201304, end: 201311
  2. DOXORUBICIN [Suspect]
     Active Substance: DOXORUBICIN
     Indication: BURKITT^S LYMPHOMA
     Dosage: TOTAL OF 8 CYCLES (GIVEN DURING THE ODD CYCLES)
     Dates: start: 201304, end: 201311
  3. SODIUM HYDROGEN CARBONATE [Suspect]
     Active Substance: SODIUM BICARBONATE
     Indication: BURKITT^S LYMPHOMA
     Dosage: TOTAL OF 8 CYCLES (GIVEN DURING THE EVEN CYCLES)
     Dates: start: 201304, end: 201311
  4. METHOTREXATE SODIUM. [Suspect]
     Active Substance: METHOTREXATE SODIUM
     Indication: BURKITT^S LYMPHOMA
     Dosage: TOTAL OF 8 CYCLES (DURING THE ODD CYCLES)
     Dates: start: 201304, end: 201311
  5. MESNA. [Suspect]
     Active Substance: MESNA
     Indication: BURKITT^S LYMPHOMA
     Dosage: TOTAL OF 8 CYCLES (GIVEN DURING THE ODD CYCLES)
     Dates: start: 201304, end: 201311
  6. CALCIUM FOLINATE [Suspect]
     Active Substance: LEUCOVORIN CALCIUM
     Indication: BURKITT^S LYMPHOMA
     Dosage: TOTAL OF 8 CYCLES (GIVEN DURING THE EVENT CYCLES)
     Dates: start: 201304, end: 201311
  7. VINCRISTINE SULFATE. [Suspect]
     Active Substance: VINCRISTINE SULFATE
     Indication: BURKITT^S LYMPHOMA
     Dosage: TOTAL OF 8 CYCLES (GIVEN DURING THE ODD CYCLES)
     Dates: start: 201304, end: 201311
  8. DEXAMETHASONE. [Suspect]
     Active Substance: DEXAMETHASONE
     Indication: BURKITT^S LYMPHOMA
     Dosage: TOTAL OF 8 CYCLES (GIVEN DURING THE ODD CYCLES)
     Dates: start: 201304, end: 201311
  9. CYTARABINE. [Suspect]
     Active Substance: CYTARABINE
     Indication: BURKITT^S LYMPHOMA
     Dosage: TOTAL OF 8 CYCLES (DURING THE ODD CYCLES)
     Dates: start: 201304, end: 201311
  10. METHOTREXATE SODIUM. [Suspect]
     Active Substance: METHOTREXATE SODIUM
     Dosage: TOTAL OF 8 CYCLES (DURING THE EVEN CYCLES)
     Dates: start: 201304, end: 201311
  11. CYCLOPHOSPHAMIDE. [Suspect]
     Active Substance: CYCLOPHOSPHAMIDE
     Indication: BURKITT^S LYMPHOMA
     Dosage: TOTAL OF 8 CYCLES (GIVEN DURING THE ODD CYCLES)
     Dates: start: 201304, end: 201311

REACTIONS (1)
  - Appendicitis [Recovered/Resolved]
